FAERS Safety Report 9486350 (Version 2)
Quarter: 2014Q1

REPORT INFORMATION
  Report Type: Not Available
  Country: GB (occurrence: GB)
  Receive Date: 20130829
  Receipt Date: 20140128
  Transmission Date: 20141002
  Serious: Yes (Other)
  Sender: FDA-Public Use
  Company Number: GB-ASTELLAS-2013EU007188

PATIENT
  Age: 73 Year
  Sex: Female
  Weight: 55 kg

DRUGS (38)
  1. BETMIGA [Suspect]
     Dosage: UNK
     Route: 065
     Dates: start: 20130724
  2. AMLODIPINE [Concomitant]
     Dosage: UNK
     Route: 065
     Dates: start: 20130612
  3. AMOXICILLIN [Concomitant]
     Dosage: UNK
     Route: 065
     Dates: start: 20130610, end: 20130617
  4. AMOXICILLIN [Concomitant]
     Dosage: UNK
     Route: 065
     Dates: start: 20130430, end: 20130507
  5. ASPIRIN [Concomitant]
     Dosage: UNK
     Route: 065
     Dates: start: 20130430, end: 20130723
  6. CARBOCISTEINE [Concomitant]
     Dosage: UNK
     Route: 065
     Dates: start: 20130513, end: 20130612
  7. CHLORAMPHENICOL [Concomitant]
     Dosage: UNK
     Route: 065
     Dates: start: 20130619, end: 20130629
  8. CINCHOCAINE [Concomitant]
     Dosage: UNK
     Route: 065
     Dates: start: 20130701, end: 20130711
  9. CLOPIDOGREL [Concomitant]
     Dosage: UNK
     Route: 065
     Dates: start: 20130514, end: 20130613
  10. DOMPERIDONE [Concomitant]
     Dosage: UNK
     Route: 065
     Dates: start: 20130408, end: 20130511
  11. DOMPERIDONE [Concomitant]
     Dosage: UNK
     Route: 065
     Dates: start: 20130612, end: 20130710
  12. ERYTHROMYCIN [Concomitant]
     Dosage: UNK
     Route: 065
     Dates: start: 20130701, end: 20130717
  13. ESOMEPRAZOLE [Concomitant]
     Dosage: UNK
     Route: 065
     Dates: start: 20130528
  14. FELODIPINE [Concomitant]
     Dosage: UNK
     Route: 065
     Dates: start: 20130513, end: 20130708
  15. FEXOFENADINE [Concomitant]
     Dosage: UNK
     Route: 065
     Dates: start: 20130801
  16. FLUTICASONE [Concomitant]
     Dosage: UNK
     Route: 065
     Dates: start: 20120606
  17. FLUTICASONE PROPIONATE [Concomitant]
     Dosage: UNK
     Route: 065
     Dates: start: 20130513, end: 20130610
  18. FUCIDIN                            /00065701/ [Concomitant]
     Dosage: UNK
     Route: 065
     Dates: start: 20130701, end: 20130708
  19. FUROSEMIDE [Concomitant]
     Dosage: UNK
     Route: 065
     Dates: start: 20130717, end: 20130724
  20. HYDROCORTICONE [Concomitant]
     Dosage: UNK
     Route: 065
     Dates: start: 20130722, end: 20130729
  21. HYDROXOCOBALAMIN [Concomitant]
     Dosage: UNK
     Route: 065
     Dates: start: 20130806
  22. HYDROXOCOBALAMIN [Concomitant]
     Dosage: UNK
     Route: 065
     Dates: start: 20130528, end: 20130529
  23. LACTULOSE [Concomitant]
     Dosage: UNK
     Route: 065
     Dates: start: 20130710, end: 20130720
  24. METOCLOPRAMIDE [Concomitant]
     Dosage: UNK
     Route: 065
     Dates: start: 20130709, end: 20130806
  25. METOCLOPRAMIDE [Concomitant]
     Dosage: UNK
     Route: 065
     Dates: start: 20130513, end: 20130610
  26. NICOTINE [Concomitant]
     Dosage: UNK
     Route: 065
     Dates: start: 20120606, end: 20130607
  27. OMEPRAZOLE [Concomitant]
     Dosage: UNK
     Route: 065
     Dates: start: 20130322, end: 20130708
  28. PREDNISOLONE [Concomitant]
     Dosage: UNK
     Route: 065
     Dates: start: 20130514, end: 20130519
  29. PREGABALIN [Concomitant]
     Dosage: UNK
     Route: 065
     Dates: start: 20130430, end: 20130708
  30. RAMIPRIL [Concomitant]
     Dosage: UNK
     Route: 065
     Dates: start: 20130513, end: 20130610
  31. RANITIDINE [Concomitant]
     Dosage: UNK
     Route: 065
     Dates: start: 20130514, end: 20130613
  32. SODIUM CHLORIDE [Concomitant]
     Dosage: UNK
     Route: 065
     Dates: start: 20130531, end: 20130708
  33. SODIUM PICOSULFATE [Concomitant]
     Dosage: UNK
     Route: 065
     Dates: start: 20120508
  34. TEMAZEPAM [Concomitant]
     Dosage: UNK
     Route: 065
     Dates: start: 20130322
  35. TIOTROPIUM [Concomitant]
     Dosage: UNK
     Route: 065
     Dates: start: 20130322
  36. TRIMETHOPRIM [Concomitant]
     Dosage: UNK
     Route: 065
     Dates: start: 20130805
  37. TRIMETHOPRIM [Concomitant]
     Dosage: UNK
     Route: 065
     Dates: start: 20130430, end: 20130507
  38. VENTOLIN                           /00139501/ [Concomitant]
     Dosage: UNK
     Route: 065
     Dates: start: 20130419

REACTIONS (3)
  - Blister [Recovering/Resolving]
  - Rash [Recovering/Resolving]
  - Cheilitis [Recovering/Resolving]
